FAERS Safety Report 6238738-6 (Version None)
Quarter: 2009Q2

REPORT INFORMATION
  Report Type: 
  Country: None (occurrence: None)
  Receive Date: 20090617
  Receipt Date: 20090617
  Transmission Date: 20091009
  Serious: Yes (Hospitalization)
  Sender: FDA-Public Use
  Company Number: None

PATIENT
  Age: 77 Year
  Sex: Female
  Weight: 83 kg

DRUGS (12)
  1. AMIODARONE HCL [Suspect]
     Indication: ATRIAL FIBRILLATION
     Dosage: 200 MG DAILY PO
     Route: 048
  2. WARFARIN [Concomitant]
  3. GABAPENTIN [Concomitant]
  4. METOPROLOL SUCCINATE [Concomitant]
  5. HYDROHCLORTHIAZIDE [Concomitant]
  6. FISH OIL [Concomitant]
  7. TRICOR [Concomitant]
  8. ALLOPURINOL [Concomitant]
  9. NIASPAN [Concomitant]
  10. EVISTA [Concomitant]
  11. ASPIRIN [Concomitant]
  12. SPIRIVA [Concomitant]

REACTIONS (6)
  - BRONCHOSCOPY ABNORMAL [None]
  - DRUG TOXICITY [None]
  - LUNG INFILTRATION [None]
  - PLEURAL FIBROSIS [None]
  - PNEUMONIA PRIMARY ATYPICAL [None]
  - PULMONARY FIBROSIS [None]
